FAERS Safety Report 13416869 (Version 1)
Quarter: 2017Q2

REPORT INFORMATION
  Report Type: Spontaneous
  Country: US (occurrence: US)
  Receive Date: 20170406
  Receipt Date: 20170406
  Transmission Date: 20170830
  Serious: No
  Sender: FDA-Public Use
  Company Number: US-BAYER-2017-066744

PATIENT
  Age: 43 Year
  Sex: Female

DRUGS (1)
  1. BETASERON [Suspect]
     Active Substance: INTERFERON BETA-1B
     Indication: MULTIPLE SCLEROSIS
     Dosage: 0.3MG
     Route: 058
     Dates: start: 2013

REACTIONS (4)
  - Sinusitis [None]
  - Pain [None]
  - Influenza [None]
  - Fall [None]

NARRATIVE: CASE EVENT DATE: 201703
